FAERS Safety Report 18105959 (Version 2)
Quarter: 2020Q3

REPORT INFORMATION
  Report Type: Report from Study
  Country: None (occurrence: CA)
  Receive Date: 20200804
  Receipt Date: 20200811
  Transmission Date: 20201103
  Serious: Yes (Hospitalization)
  Sender: FDA-Public Use
  Company Number: CA-ABBVIE-20K-028-3506546-00

PATIENT
  Age: 72 Year
  Sex: Female

DRUGS (1)
  1. HUMIRA [Suspect]
     Active Substance: ADALIMUMAB
     Indication: RHEUMATOID ARTHRITIS
     Route: 058
     Dates: start: 20130429, end: 20200717

REACTIONS (8)
  - Crohn^s disease [Unknown]
  - Colitis ulcerative [Unknown]
  - Stress [Unknown]
  - Intestinal haemorrhage [Unknown]
  - Dysphonia [Not Recovered/Not Resolved]
  - Urticaria [Unknown]
  - Sinusitis [Recovered/Resolved]
  - Diverticulitis [Unknown]

NARRATIVE: CASE EVENT DATE: 201912
